FAERS Safety Report 5798783-1 (Version None)
Quarter: 2008Q2

REPORT INFORMATION
  Report Type: 
  Country: None (occurrence: None)
  Receive Date: 20080630
  Receipt Date: 20080617
  Transmission Date: 20081010
  Serious: Yes (Other)
  Sender: FDA-Public Use
  Company Number: ES-GDP-08404069

PATIENT
  Age: 71 Year
  Sex: Male

DRUGS (1)
  1. METVIX PDT (METHYL AMINOLEVULINATE HYDROCHLORIDE) CREAM 16 % [Suspect]
     Indication: SQUAMOUS CELL CARCINOMA
     Dosage: 1 DF TOPICAL
     Route: 061
     Dates: start: 20071110, end: 20071110

REACTIONS (3)
  - MALIGNANT NEOPLASM PROGRESSION [None]
  - OFF LABEL USE [None]
  - SQUAMOUS CELL CARCINOMA [None]
